FAERS Safety Report 8801502 (Version 2)
Quarter: 2014Q2

REPORT INFORMATION
  Report Type: Report from Study
  Country: US (occurrence: US)
  Receive Date: 20120921
  Receipt Date: 20140107
  Transmission Date: 20141212
  Serious: Yes (Death)
  Sender: FDA-Public Use
  Company Number: US-ROCHE-1124765

PATIENT
  Sex: Female
  Weight: 51.53 kg

DRUGS (8)
  1. AVASTIN [Suspect]
     Indication: LUNG NEOPLASM MALIGNANT
     Dosage: RECIEVED ON 10-NOV-2009 AND 01-DEC-2009
     Route: 042
     Dates: start: 20091020
  2. TAXOL [Concomitant]
     Route: 042
  3. EMEND [Concomitant]
     Route: 042
  4. ALOXI [Concomitant]
     Route: 042
  5. DECADRON [Concomitant]
     Route: 042
  6. BENADRYL (UNITED STATES) [Concomitant]
     Route: 042
  7. CIMETIDINE [Concomitant]
     Route: 042
  8. TAXOTERE [Concomitant]
     Route: 042

REACTIONS (1)
  - Death [Fatal]
